FAERS Safety Report 18981345 (Version 2)
Quarter: 2021Q2

REPORT INFORMATION
  Report Type: Spontaneous
  Country: JP (occurrence: JP)
  Receive Date: 20210308
  Receipt Date: 20210414
  Transmission Date: 20210717
  Serious: Yes (Other)
  Sender: FDA-Public Use
  Company Number: JP-ELI_LILLY_AND_COMPANY-JP202103002957

PATIENT
  Age: 66 Year
  Sex: Female

DRUGS (17)
  1. PAXIL [Concomitant]
     Active Substance: PAROXETINE HYDROCHLORIDE
  2. DULOXETINE HYDROCHLORIDE. [Suspect]
     Active Substance: DULOXETINE HYDROCHLORIDE
     Indication: DEPRESSION
     Dosage: 20 MG, EACH EVENING
     Route: 048
     Dates: start: 20210203, end: 20210217
  3. PREDONINE [Concomitant]
     Active Substance: PREDNISOLONE
     Dosage: UNK, PRN
  4. PARIET [Concomitant]
     Active Substance: RABEPRAZOLE SODIUM
  5. EDIROL [Concomitant]
     Active Substance: ELDECALCITOL
  6. ABILIFY [Concomitant]
     Active Substance: ARIPIPRAZOLE
  7. CRESTOR [Concomitant]
     Active Substance: ROSUVASTATIN CALCIUM
  8. LIMAS [Concomitant]
     Active Substance: LITHIUM CARBONATE
  9. LOXOPROFEN [Concomitant]
     Active Substance: LOXOPROFEN
     Dosage: UNK, PRN
  10. BENZALIN [NITRAZEPAM] [Concomitant]
     Active Substance: NITRAZEPAM
  11. SILECE [Concomitant]
     Active Substance: FLUNITRAZEPAM
  12. CLOPIDOGREL [Concomitant]
     Active Substance: CLOPIDOGREL BISULFATE
  13. GASMOTIN [Concomitant]
     Active Substance: MOSAPRIDE CITRATE
  14. SENNOSIDE [SENNOSIDE A+B] [Concomitant]
     Active Substance: SENNOSIDES A AND B
  15. AMITIZA [Concomitant]
     Active Substance: LUBIPROSTONE
  16. DULOXETINE HYDROCHLORIDE. [Suspect]
     Active Substance: DULOXETINE HYDROCHLORIDE
     Indication: ARTHRALGIA
     Dosage: 40 MG, EACH EVENING
     Route: 048
     Dates: start: 20210218, end: 20210218
  17. TRAZODONE [Concomitant]
     Active Substance: TRAZODONE HYDROCHLORIDE

REACTIONS (2)
  - Anaphylactic reaction [Recovered/Resolved]
  - Swelling face [Recovered/Resolved]

NARRATIVE: CASE EVENT DATE: 20210219
